FAERS Safety Report 17545136 (Version 1)
Quarter: 2020Q1

REPORT INFORMATION
  Report Type: Spontaneous
  Country: US (occurrence: US)
  Receive Date: 20200313
  Receipt Date: 20200313
  Transmission Date: 20200409
  Serious: Yes (Other)
  Sender: FDA-Public Use
  Company Number: None

PATIENT
  Age: 43 Year
  Sex: Female
  Weight: 83.25 kg

DRUGS (9)
  1. CLARITIN-D NOS [Concomitant]
     Active Substance: LORATADINE\PSEUDOEPHEDRINE SULFATE
  2. ZOCOR [Concomitant]
     Active Substance: SIMVASTATIN
  3. CEPHALEXIN 500MG [Suspect]
     Active Substance: CEPHALEXIN
     Indication: SURGERY
     Dosage: ?          QUANTITY:1 CAPSULE(S);?
     Route: 048
     Dates: start: 20200127, end: 20200131
  4. PRILOSEC [Concomitant]
     Active Substance: OMEPRAZOLE MAGNESIUM
  5. TRINTELLIX [Concomitant]
     Active Substance: VORTIOXETINE HYDROBROMIDE
  6. MOBIC [Concomitant]
     Active Substance: MELOXICAM
  7. DOXEPIN [Concomitant]
     Active Substance: DOXEPIN
  8. BUDESONIDE. [Concomitant]
     Active Substance: BUDESONIDE
  9. PLAQUENIL [Concomitant]
     Active Substance: HYDROXYCHLOROQUINE SULFATE

REACTIONS (4)
  - Fatigue [None]
  - Asthenia [None]
  - Depression [None]
  - Loss of personal independence in daily activities [None]

NARRATIVE: CASE EVENT DATE: 20200130
